FAERS Safety Report 19395171 (Version 1)
Quarter: 2021Q2

REPORT INFORMATION
  Report Type: Report from Study
  Country: FR (occurrence: FR)
  Receive Date: 20210609
  Receipt Date: 20210609
  Transmission Date: 20210717
  Serious: Yes (Hospitalization, Other)
  Sender: FDA-Public Use
  Company Number: FR-TAKEDA-2021TUS036180

PATIENT
  Age: 55 Year
  Sex: Male

DRUGS (12)
  1. TEDUGLUTIDE [Suspect]
     Active Substance: TEDUGLUTIDE
     Indication: SHORT-BOWEL SYNDROME
     Dosage: 0.05 MILLIGRAM/KILOGRAM, QD
     Route: 065
     Dates: start: 20170123, end: 201704
  2. TEDUGLUTIDE [Suspect]
     Active Substance: TEDUGLUTIDE
     Indication: SHORT-BOWEL SYNDROME
     Dosage: 0.05 MILLIGRAM/KILOGRAM, QD
     Route: 065
     Dates: start: 20170123, end: 201704
  3. MAGNESIUM CITRATE. [Concomitant]
     Active Substance: MAGNESIUM CITRATE
     Indication: HYPERCALCIURIA
     Dosage: 100 MILLIGRAM, TID
     Route: 048
     Dates: start: 201904
  4. TEDUGLUTIDE [Suspect]
     Active Substance: TEDUGLUTIDE
     Indication: SHORT-BOWEL SYNDROME
     Dosage: 0.05 MILLIGRAM/KILOGRAM, QD
     Route: 065
     Dates: start: 20170123, end: 201704
  5. VANCOMYCINE [Concomitant]
     Active Substance: VANCOMYCIN
     Indication: STAPHYLOCOCCAL ABSCESS
     Dosage: 2500 MILLIGRAM, QD
     Route: 065
     Dates: start: 20201008, end: 20201028
  6. MAGNESIUM CHLORIDE. [Concomitant]
     Active Substance: MAGNESIUM CHLORIDE
     Indication: HYPERCALCIURIA
     Dosage: 1 UNK
     Route: 065
     Dates: start: 201808
  7. TEDUGLUTIDE [Suspect]
     Active Substance: TEDUGLUTIDE
     Dosage: 0.05 MILLIGRAM/KILOGRAM, QD
     Route: 065
     Dates: start: 201704
  8. TEDUGLUTIDE [Suspect]
     Active Substance: TEDUGLUTIDE
     Dosage: 0.05 MILLIGRAM/KILOGRAM, QD
     Route: 065
     Dates: start: 201704
  9. TEDUGLUTIDE [Suspect]
     Active Substance: TEDUGLUTIDE
     Dosage: 0.05 MILLIGRAM/KILOGRAM, QD
     Route: 065
     Dates: start: 201704
  10. TEDUGLUTIDE [Suspect]
     Active Substance: TEDUGLUTIDE
     Dosage: 0.05 MILLIGRAM/KILOGRAM, QD
     Route: 065
     Dates: start: 201704
  11. TEDUGLUTIDE [Suspect]
     Active Substance: TEDUGLUTIDE
     Indication: SHORT-BOWEL SYNDROME
     Dosage: 0.05 MILLIGRAM/KILOGRAM, QD
     Route: 065
     Dates: start: 20170123, end: 201704
  12. ACLASTA [Concomitant]
     Active Substance: ZOLEDRONIC ACID
     Indication: OSTEOPOROSIS
     Dosage: 5 MILLIGRAM
     Route: 042
     Dates: start: 201904

REACTIONS (1)
  - Staphylococcal infection [Recovered/Resolved]

NARRATIVE: CASE EVENT DATE: 20201008
